FAERS Safety Report 15867928 (Version 1)
Quarter: 2019Q1

REPORT INFORMATION
  Report Type: Spontaneous
  Country: FR (occurrence: FR)
  Receive Date: 20190125
  Receipt Date: 20190125
  Transmission Date: 20190417
  Serious: Yes (Hospitalization)
  Sender: FDA-Public Use
  Company Number: PHHY2019FR015762

PATIENT
  Age: 71 Year
  Sex: Male
  Weight: 78 kg

DRUGS (25)
  1. GEMCITABINE HYDROCHLORIDE. [Suspect]
     Active Substance: GEMCITABINE HYDROCHLORIDE
     Dosage: 1520 MG, UNK
     Route: 065
     Dates: start: 20180413, end: 20180413
  2. CARBOPLATIN. [Suspect]
     Active Substance: CARBOPLATIN
     Dosage: 320 MG, UNK
     Route: 065
     Dates: start: 20180427, end: 20180427
  3. GEMCITABINE HYDROCHLORIDE. [Suspect]
     Active Substance: GEMCITABINE HYDROCHLORIDE
     Dosage: 1520 MG, UNK
     Route: 065
     Dates: start: 20180427, end: 20180427
  4. CARBOPLATIN. [Suspect]
     Active Substance: CARBOPLATIN
     Dosage: 390 MG, UNK
     Route: 065
     Dates: start: 20180518, end: 20180518
  5. CISPLATIN. [Suspect]
     Active Substance: CISPLATIN
     Indication: PRODUCT USED FOR UNKNOWN INDICATION
     Dosage: 140 MG, UNK
     Route: 065
     Dates: start: 20180316, end: 20180316
  6. GEMCITABINE HYDROCHLORIDE. [Suspect]
     Active Substance: GEMCITABINE HYDROCHLORIDE
     Dosage: 1520 MG, UNK
     Route: 065
     Dates: start: 20180504, end: 20180504
  7. GEMCITABINE HYDROCHLORIDE. [Suspect]
     Active Substance: GEMCITABINE HYDROCHLORIDE
     Dosage: 2080 MG, UNK
     Route: 065
     Dates: start: 20180323, end: 20180323
  8. GEMCITABINE HYDROCHLORIDE. [Suspect]
     Active Substance: GEMCITABINE HYDROCHLORIDE
     Dosage: 1520 MG, UNK
     Route: 065
     Dates: start: 20180518, end: 20180518
  9. GEMCITABINE HYDROCHLORIDE. [Suspect]
     Active Substance: GEMCITABINE HYDROCHLORIDE
     Dosage: 1480 MG, UNK
     Route: 065
     Dates: start: 20180615, end: 20180615
  10. ERYTHROPOIETIN [Concomitant]
     Active Substance: ERYTHROPOIETIN
     Indication: PRODUCT USED FOR UNKNOWN INDICATION
     Dosage: UNK
     Route: 065
  11. GEMCITABINE HYDROCHLORIDE. [Suspect]
     Active Substance: GEMCITABINE HYDROCHLORIDE
     Indication: PRODUCT USED FOR UNKNOWN INDICATION
     Dosage: 2040 MG, UNK
     Route: 065
     Dates: start: 20180316, end: 20180316
  12. AVELUMAB [Suspect]
     Active Substance: AVELUMAB
     Dosage: 860 MG, UNK
     Route: 065
     Dates: start: 20180405, end: 20180405
  13. AVELUMAB [Suspect]
     Active Substance: AVELUMAB
     Dosage: 820 MG, UNK
     Route: 065
     Dates: start: 20180518, end: 20180518
  14. AVELUMAB [Suspect]
     Active Substance: AVELUMAB
     Dosage: 790 MG, UNK
     Route: 065
     Dates: start: 20180615
  15. VITAMIN B1 AND B6 [Concomitant]
     Active Substance: PYRIDOXINE HYDROCHLORIDE\THIAMINE HYDROCHLORIDE
     Indication: PRODUCT USED FOR UNKNOWN INDICATION
     Dosage: UNK
     Route: 065
  16. GEMCITABINE HYDROCHLORIDE. [Suspect]
     Active Substance: GEMCITABINE HYDROCHLORIDE
     Dosage: 1500 MG, UNK
     Route: 065
     Dates: start: 20180525, end: 20180525
  17. AVELUMAB [Suspect]
     Active Substance: AVELUMAB
     Indication: PRODUCT USED FOR UNKNOWN INDICATION
     Dosage: 860 MG, UNK
     Route: 065
     Dates: start: 20180316, end: 20180316
  18. INNOHEP [Concomitant]
     Active Substance: TINZAPARIN SODIUM
     Indication: PULMONARY EMBOLISM
     Dosage: UNK
     Route: 065
  19. CARBOPLATIN. [Suspect]
     Active Substance: CARBOPLATIN
     Dosage: 250 MG, UNK
     Route: 065
     Dates: start: 20180615
  20. AVELUMAB [Suspect]
     Active Substance: AVELUMAB
     Dosage: 850 MG, UNK
     Route: 065
     Dates: start: 20180427, end: 20180427
  21. AMLOR [Concomitant]
     Active Substance: AMLODIPINE BESYLATE
     Indication: PRODUCT USED FOR UNKNOWN INDICATION
     Dosage: UNK
     Route: 065
  22. GEMCITABINE HYDROCHLORIDE. [Suspect]
     Active Substance: GEMCITABINE HYDROCHLORIDE
     Dosage: 1530 MG, UNK
     Route: 065
     Dates: start: 20180405, end: 20180405
  23. GEMCITABINE HYDROCHLORIDE. [Suspect]
     Active Substance: GEMCITABINE HYDROCHLORIDE
     Dosage: 1460 MG, UNK
     Route: 065
     Dates: start: 20180622
  24. CARBOPLATIN. [Suspect]
     Active Substance: CARBOPLATIN
     Indication: PRODUCT USED FOR UNKNOWN INDICATION
     Dosage: 340 MG, UNK
     Route: 065
     Dates: start: 20180405, end: 20180405
  25. ZOPHREN [Concomitant]
     Active Substance: ONDANSETRON
     Indication: PRODUCT USED FOR UNKNOWN INDICATION
     Dosage: UNK
     Route: 065

REACTIONS (3)
  - Renal failure [Not Recovered/Not Resolved]
  - Vomiting [Recovered/Resolved]
  - Nausea [Recovered/Resolved]

NARRATIVE: CASE EVENT DATE: 20180625
